FAERS Safety Report 23825861 (Version 1)
Quarter: 2024Q2

REPORT INFORMATION
  Report Type: Spontaneous
  Country: US (occurrence: None)
  Receive Date: 20240506
  Receipt Date: 20240506
  Transmission Date: 20240716
  Serious: Yes (Hospitalization)
  Sender: FDA-Public Use
  Company Number: None

PATIENT
  Age: 29 Year
  Sex: Female
  Weight: 80.7 kg

DRUGS (1)
  1. IRON SUCROSE [Suspect]
     Active Substance: IRON SUCROSE
     Dosage: FREQUENCY : ONCE;?
     Route: 042
     Dates: start: 20220719, end: 20220719

REACTIONS (7)
  - Arthralgia [None]
  - Arthralgia [None]
  - Hypotension [None]
  - Hyperhidrosis [None]
  - Back pain [None]
  - Pain in extremity [None]
  - Pain in extremity [None]

NARRATIVE: CASE EVENT DATE: 20220719
